FAERS Safety Report 16760671 (Version 2)
Quarter: 2019Q3

REPORT INFORMATION
  Report Type: Spontaneous
  Country: SE (occurrence: SE)
  Receive Date: 20190830
  Receipt Date: 20190924
  Transmission Date: 20191005
  Serious: Yes (Other)
  Sender: FDA-Public Use
  Company Number: SE-AMGEN-SWESP2019126541

PATIENT
  Age: 55 Year
  Sex: Female
  Weight: 103 kg

DRUGS (15)
  1. DESLORATADIN [Concomitant]
     Active Substance: DESLORATADINE
     Indication: HYPERSENSITIVITY
     Dosage: 5 MG, 1X/DAY
     Dates: start: 20190427
  2. DAIVOBET [BETAMETHASONE DIPROPIONATE;CALCIPOTRIOL] [Concomitant]
     Indication: PALMOPLANTAR PUSTULOSIS
     Dosage: UNK (AS DIRECTED)
     Dates: start: 20180507
  3. BENEPALI [Concomitant]
     Active Substance: ETANERCEPT
     Indication: HIDRADENITIS
     Dosage: UNK
     Dates: start: 20190815
  4. ENALAPRIL [Concomitant]
     Active Substance: ENALAPRIL
     Indication: BLOOD PRESSURE MEASUREMENT
     Dosage: 10 MG, 1X/DAY
     Dates: start: 20171011
  5. DERMOVAT [CLOBETASOL PROPIONATE] [Concomitant]
     Indication: PALMOPLANTAR PUSTULOSIS
     Dosage: AS DIRECTED
     Dates: start: 20180406
  6. ELOCON [Concomitant]
     Active Substance: MOMETASONE FUROATE
     Indication: PALMOPLANTAR PUSTULOSIS
     Dosage: UNK (CHANGE EVERY THIRD DAY FOR 6-8 WEEKS)
     Dates: start: 20180316
  7. ALVEDON [Concomitant]
     Active Substance: ACETAMINOPHEN
     Indication: PAIN
     Dosage: 2 DF, 3X/DAY (SWALLOWS WHOLE)
     Dates: start: 20170927
  8. ENBREL [Suspect]
     Active Substance: ETANERCEPT
     Dosage: UNK
     Route: 065
  9. MIRTAZAPIN [Concomitant]
     Active Substance: MIRTAZAPINE
     Indication: INSOMNIA
  10. ZIPZOC [Concomitant]
     Indication: PALMOPLANTAR PUSTULOSIS
     Dosage: UNK (DIVIDE IN 3 PARTS, PUT ON HANDS AND FEET AT NIGHT)
     Dates: start: 20180406
  11. ENALAPRIL [Concomitant]
     Active Substance: ENALAPRIL
     Indication: CARDIAC DISORDER
  12. DIFFERIN [Concomitant]
     Active Substance: ADAPALENE
     Indication: ACNE
     Dosage: 1 DF, 1X/DAY
     Dates: start: 20180802
  13. MIRTAZAPIN [Concomitant]
     Active Substance: MIRTAZAPINE
     Indication: MOOD ALTERED
     Dosage: 15 MG, 1X/DAY, AT NIGHT
     Dates: start: 20180828
  14. BETNOVATE MED CHINOFORM [Concomitant]
     Indication: HIDRADENITIS
     Dosage: UNK ( AS DIRECTED PUT ON MORNING AND EVENING FOR 2 WEEKS)
     Dates: start: 20180802
  15. ENBREL [Suspect]
     Active Substance: ETANERCEPT
     Indication: PRODUCT USED FOR UNKNOWN INDICATION
     Dosage: 50 MG, 2X/WEEK (THIGH)
     Route: 058
     Dates: start: 20190716, end: 20190726

REACTIONS (8)
  - Off label use [Unknown]
  - Injection site erythema [Recovered/Resolved]
  - Rash [Recovered/Resolved]
  - Injection site recall reaction [Recovered/Resolved]
  - Injection site warmth [Recovered/Resolved]
  - Injection site pain [Recovered/Resolved]
  - Injection site rash [Recovered/Resolved]
  - Product use in unapproved indication [Unknown]

NARRATIVE: CASE EVENT DATE: 20190716
